FAERS Safety Report 11191650 (Version 1)
Quarter: 2015Q2

REPORT INFORMATION
  Report Type: Spontaneous
  Country: US (occurrence: None)
  Receive Date: 20150615
  Receipt Date: 20150615
  Transmission Date: 20150821
  Serious: Yes (Death, Hospitalization)
  Sender: FDA-Public Use
  Company Number: None

PATIENT
  Age: 18 Year
  Sex: Female
  Weight: 60 kg

DRUGS (1)
  1. CYTARABINE. [Suspect]
     Active Substance: CYTARABINE
     Dates: end: 20100704

REACTIONS (11)
  - Renal failure [None]
  - Poor peripheral circulation [None]
  - Hypotension [None]
  - Pyrexia [None]
  - Continuous haemodiafiltration [None]
  - Anaemia [None]
  - Respiratory failure [None]
  - Metabolic acidosis [None]
  - Disseminated intravascular coagulation [None]
  - Neutropenia [None]
  - Generalised oedema [None]

NARRATIVE: CASE EVENT DATE: 20100714
